FAERS Safety Report 6127777 (Version 2)
Quarter: 2020Q3

REPORT INFORMATION
  Report Type: Report from Study
  Country: SE (occurrence: SE)
  Receive Date: 20060914
  Receipt Date: 20060929
  Transmission Date: 20201104
  Serious: Yes (Hospitalization)
  Sender: FDA-Public Use
  Company Number: SE-JNJFOC-20060900893

PATIENT
  Age: 33 Year
  Sex: Male
  Weight: 96 kg

DRUGS (3)
  1. RISPERDAL [Suspect]
     Active Substance: RISPERIDONE
     Indication: SCHIZOPHRENIA
     Route: 048
  2. RISPERIDONE. [Suspect]
     Active Substance: RISPERIDONE
     Route: 030
  3. RISPERIDONE. [Suspect]
     Active Substance: RISPERIDONE
     Indication: SCHIZOPHRENIA
     Route: 030

REACTIONS (2)
  - Schizophrenia [Not Recovered/Not Resolved]
  - Catatonia [Recovered/Resolved]

NARRATIVE: CASE EVENT DATE: 20060901
